FAERS Safety Report 6705981-9 (Version None)
Quarter: 2010Q2

REPORT INFORMATION
  Report Type: 
  Country: None (occurrence: None)
  Receive Date: 20100430
  Receipt Date: 20100430
  Transmission Date: 20101027
  Serious: Yes (Hospitalization)
  Sender: FDA-Public Use
  Company Number: None

PATIENT
  Age: 15 Day
  Sex: Male
  Weight: 3.6 kg

DRUGS (9)
  1. NOVOSEVEN RT [Suspect]
     Indication: POSTMENOPAUSAL HAEMORRHAGE
     Dosage: 0.23 MG X 3 IV  (3 DOSES)
     Route: 042
     Dates: start: 20091223, end: 20091223
  2. FAMOTIDINE [Concomitant]
  3. MORPHINE [Concomitant]
  4. VECURONIUM BROMIDE [Concomitant]
  5. MILRINONE [Concomitant]
  6. NIPRIDE [Concomitant]
  7. PHENTOLAMINE MESYLATE [Concomitant]
  8. NITROGLYCERIN [Concomitant]
  9. PIPERACILLIN AND TAZOBACTAM [Concomitant]

REACTIONS (6)
  - ARTERIAL THROMBOSIS LIMB [None]
  - ATRIAL SEPTAL DEFECT [None]
  - COARCTATION OF THE AORTA [None]
  - DEEP VEIN THROMBOSIS [None]
  - VENOUS THROMBOSIS [None]
  - VENTRICULAR SEPTAL DEFECT [None]
